FAERS Safety Report 8036720-X (Version None)
Quarter: 2012Q1

REPORT INFORMATION
  Report Type: 
  Country: None (occurrence: None)
  Receive Date: 20120111
  Receipt Date: 20120102
  Transmission Date: 20120608
  Serious: Yes (Hospitalization)
  Sender: FDA-Public Use
  Company Number: TR-MEDIMMUNE-MEDI-0014378

PATIENT
  Sex: Female
  Weight: 4.5 kg

DRUGS (3)
  1. SYNAGIS [Suspect]
     Dates: start: 20111201, end: 20111201
  2. ERGOCALCIFEROL [Concomitant]
     Route: 048
  3. FISH OIL [Concomitant]
     Route: 048

REACTIONS (4)
  - CONVULSION [None]
  - PYREXIA [None]
  - DEHYDRATION [None]
  - RENAL FAILURE ACUTE [None]
